FAERS Safety Report 19749824 (Version 4)
Quarter: 2023Q1

REPORT INFORMATION
  Report Type: Spontaneous
  Country: US (occurrence: US)
  Receive Date: 20210826
  Receipt Date: 20230103
  Transmission Date: 20230418
  Serious: Yes (Other)
  Sender: FDA-Public Use
  Company Number: US-PFIZER INC-2020296115

PATIENT
  Age: 81 Year
  Sex: Male

DRUGS (4)
  1. INLYTA [Suspect]
     Active Substance: AXITINIB
     Indication: Renal cancer
     Dosage: 1 MG
     Route: 048
     Dates: start: 20200101
  2. INLYTA [Suspect]
     Active Substance: AXITINIB
     Dosage: 1 MG
     Route: 048
     Dates: start: 20200520, end: 2022
  3. INLYTA [Suspect]
     Active Substance: AXITINIB
     Dosage: 2 MG, 2X/DAY
     Route: 048
  4. INLYTA [Suspect]
     Active Substance: AXITINIB
     Dosage: 1 MG, 2X/DAY

REACTIONS (9)
  - Renal impairment [Unknown]
  - Product prescribing error [Unknown]
  - Off label use [Unknown]
  - Protein total increased [Unknown]
  - Blood pressure increased [Unknown]
  - Pruritus [Unknown]
  - Diarrhoea [Unknown]
  - Product dose omission issue [Unknown]
  - Intentional dose omission [Unknown]
